FAERS Safety Report 10191775 (Version 2)
Quarter: 2017Q3

REPORT INFORMATION
  Report Type: Spontaneous
  Country: CA (occurrence: CA)
  Receive Date: 20140523
  Receipt Date: 20170714
  Transmission Date: 20171127
  Serious: Yes (Other)
  Sender: FDA-Public Use
  Company Number: CA-009507513-1405CAN008335

PATIENT
  Age: 6 Year
  Sex: Female
  Weight: 19 kg

DRUGS (4)
  1. SINGULAIR [Concomitant]
     Active Substance: MONTELUKAST SODIUM
     Dosage: 5 MG, HS
     Route: 048
  2. ZENHALE [Suspect]
     Active Substance: FORMOTEROL FUMARATE\MOMETASONE FUROATE
     Dosage: 200/5, (2 PUFF, BID) WHEN ^UNWELL^,
     Dates: start: 2013, end: 20131220
  3. VENTOLIN [Concomitant]
     Active Substance: ALBUTEROL SULFATE
     Indication: INFLUENZA
     Dosage: 100 MOI, 2-4 PUFF, Q4H (ALSO REPORTED 3 X DAY)
     Route: 055
  4. ZENHALE [Suspect]
     Active Substance: FORMOTEROL FUMARATE\MOMETASONE FUROATE
     Indication: ASTHMA
     Dosage: 2 PUFF ONCE DAILY
     Route: 065
     Dates: start: 20130318, end: 2013

REACTIONS (3)
  - Upper respiratory tract infection [Recovered/Resolved]
  - Cortisol decreased [Recovered/Resolved]
  - Fatigue [Recovered/Resolved]

NARRATIVE: CASE EVENT DATE: 20131217
